FAERS Safety Report 15272437 (Version 1)
Quarter: 2018Q3

REPORT INFORMATION
  Report Type: Spontaneous
  Country: US (occurrence: US)
  Receive Date: 20180727
  Receipt Date: 20180727
  Transmission Date: 20181010
  Serious: Yes (Disabling)
  Sender: FDA-Public Use
  Company Number: None

PATIENT
  Age: 67 Year
  Sex: Female
  Weight: 69.3 kg

DRUGS (11)
  1. FEMARA [Concomitant]
     Active Substance: LETROZOLE
  2. SYNTHROID [Concomitant]
     Active Substance: LEVOTHYROXINE SODIUM
  3. KRILL [Concomitant]
  4. B6 [Concomitant]
     Active Substance: PYRIDOXINE HYDROCHLORIDE
  5. OMERPRAZOLE [Concomitant]
     Active Substance: OMEPRAZOLE
  6. LEVAQUIN [Suspect]
     Active Substance: LEVOFLOXACIN
     Indication: UPPER RESPIRATORY TRACT INFECTION
     Dates: start: 20180110, end: 20180120
  7. BIOTIN [Concomitant]
     Active Substance: BIOTIN
  8. ATORVOSTATIN [Concomitant]
     Active Substance: ATORVASTATIN
  9. VITAMIN D3 [Concomitant]
     Active Substance: CHOLECALCIFEROL
  10. CALCIUM [Concomitant]
     Active Substance: CALCIUM
  11. ASPIRIN. [Concomitant]
     Active Substance: ASPIRIN

REACTIONS (3)
  - Mobility decreased [None]
  - Meniscus injury [None]
  - Joint swelling [None]

NARRATIVE: CASE EVENT DATE: 20180122
